FAERS Safety Report 7443439-2 (Version None)
Quarter: 2011Q2

REPORT INFORMATION
  Report Type: 
  Country: None (occurrence: None)
  Receive Date: 20110428
  Receipt Date: 20110426
  Transmission Date: 20111010
  Serious: Yes (Other)
  Sender: FDA-Public Use
  Company Number: JP-PFIZER INC-2011090124

PATIENT
  Age: 76 Year
  Sex: Female

DRUGS (6)
  1. NORVASC [Concomitant]
     Dosage: UNK
     Route: 048
  2. THEO-DUR [Concomitant]
     Dosage: UNK
     Route: 048
  3. LIVOSTIN [Concomitant]
     Dosage: UNK
     Route: 047
  4. OMEPRAL [Concomitant]
     Dosage: UNK
  5. LYRICA [Suspect]
     Indication: BACK PAIN
     Dosage: 75 MG, 2X/DAY
     Route: 048
     Dates: start: 20110418, end: 20110421
  6. BETAMETHASONE [Concomitant]
     Dosage: UNK

REACTIONS (3)
  - BLOOD PRESSURE DECREASED [None]
  - DIZZINESS [None]
  - PUSTULAR PSORIASIS [None]
